FAERS Safety Report 13600560 (Version 1)
Quarter: 2017Q2

REPORT INFORMATION
  Report Type: Spontaneous
  Country: US (occurrence: US)
  Receive Date: 20170531
  Receipt Date: 20170531
  Transmission Date: 20170830
  Serious: No
  Sender: FDA-Public Use
  Company Number: None

PATIENT
  Age: 35 Year
  Sex: Male
  Weight: 141.3 kg

DRUGS (11)
  1. FLURAZEPAM [Concomitant]
     Active Substance: FLURAZEPAM\FLURAZEPAM HYDROCHLORIDE
  2. FISH OIL [Concomitant]
     Active Substance: FISH OIL
  3. COQ10 [Concomitant]
     Active Substance: UBIDECARENONE
  4. MAGNESIUM [Concomitant]
     Active Substance: MAGNESIUM
  5. PROBIOTIC [Concomitant]
     Active Substance: PROBIOTICS NOS
  6. COLESTIPOL [Concomitant]
     Active Substance: COLESTIPOL
  7. VITAMIN C [Concomitant]
     Active Substance: ASCORBIC ACID
  8. LYRICA [Suspect]
     Active Substance: PREGABALIN
     Indication: NEURALGIA
     Dosage: ?          QUANTITY:1 CAPSULE(S);?
     Route: 048
     Dates: start: 20170525, end: 20170531
  9. CURAMIN [Concomitant]
     Active Substance: HERBALS
  10. KRILL OIL [Concomitant]
     Active Substance: DIETARY SUPPLEMENT
  11. MILK THISTLE [Concomitant]
     Active Substance: MILK THISTLE

REACTIONS (2)
  - Rash [None]
  - Pain [None]

NARRATIVE: CASE EVENT DATE: 20170530
